FAERS Safety Report 20080989 (Version 2)
Quarter: 2022Q1

REPORT INFORMATION
  Report Type: Spontaneous
  Country: JP (occurrence: JP)
  Receive Date: 20211117
  Receipt Date: 20220209
  Transmission Date: 20220423
  Serious: Yes (Other)
  Sender: FDA-Public Use
  Company Number: JP-GUERBET-JP-20210164

PATIENT
  Age: 46 Year
  Sex: Male

DRUGS (6)
  1. LIPIODOL [Suspect]
     Active Substance: ETHIODIZED OIL
     Indication: Therapeutic embolisation
     Dosage: NBCA AND LIPIODOL ARE MIXED AT A RATIO OF 1:2
     Route: 065
     Dates: start: 2019, end: 2019
  2. UNSPECIFIED INGREDIENT [Suspect]
     Active Substance: UNSPECIFIED INGREDIENT
     Indication: Therapeutic embolisation
     Dosage: NBCA AND LIPIODOL ARE MIXED AT A RATIO OF 1:2
     Route: 065
     Dates: start: 2019, end: 2019
  3. VALSARTAN [Concomitant]
     Active Substance: VALSARTAN
     Indication: Product used for unknown indication
     Route: 048
  4. AMLODIPINE BESYLATE [Concomitant]
     Active Substance: AMLODIPINE BESYLATE
     Indication: Product used for unknown indication
     Route: 048
  5. ALLOPURINOL [Concomitant]
     Active Substance: ALLOPURINOL
     Indication: Product used for unknown indication
     Route: 048
  6. BISOPROLOL FUMARATE [Concomitant]
     Active Substance: BISOPROLOL FUMARATE
     Indication: Product used for unknown indication
     Route: 048

REACTIONS (2)
  - Pancreatitis [Recovering/Resolving]
  - Product use in unapproved indication [Recovering/Resolving]

NARRATIVE: CASE EVENT DATE: 20190101
